FAERS Safety Report 10038289 (Version 1)
Quarter: 2014Q1

REPORT INFORMATION
  Report Type: Spontaneous
  Country: US (occurrence: None)
  Receive Date: 20140304
  Receipt Date: 20140304
  Transmission Date: 20141002
  Serious: Yes (Other)
  Sender: FDA-Public Use
  Company Number: 163-21880-13054566

PATIENT
  Age: 59 Year
  Sex: Female

DRUGS (2)
  1. REVLIMID (LENALIDOMIDE) (CAPSULES) [Suspect]
     Indication: PLASMA CELL MYELOMA
     Route: 048
     Dates: start: 20130403
  2. SYNTHROID (LEVOTHYROXINE SODIUM) [Concomitant]

REACTIONS (2)
  - Stomatitis [None]
  - Rash generalised [None]
